FAERS Safety Report 19838122 (Version 1)
Quarter: 2021Q3

REPORT INFORMATION
  Report Type: Spontaneous
  Country: DE (occurrence: DE)
  Receive Date: 20210916
  Receipt Date: 20210916
  Transmission Date: 20211014
  Serious: Yes (Hospitalization)
  Sender: FDA-Public Use
  Company Number: DE-TEVA-2021-DE-1951554

PATIENT
  Age: 74 Year
  Sex: Male
  Weight: 74 kg

DRUGS (10)
  1. LERCANIDIPINE [Concomitant]
     Active Substance: LERCANIDIPINE
     Dosage: .5 DOSAGE FORMS DAILY; 20 MG, 0?0?0.5?0
  2. MIRTAZAPIN [Concomitant]
     Active Substance: MIRTAZAPINE
     Dosage: .5 DOSAGE FORMS DAILY; 15 MG, 0?0?0.5?0
  3. METAMIZOL [Concomitant]
     Active Substance: METAMIZOLE SODIUM
     Dosage: 500 MG, AS NEEDED
  4. CANDESARTAN/HYDROCHLOROTHIAZID [Concomitant]
     Active Substance: CANDESARTAN CILEXETIL\HYDROCHLOROTHIAZIDE
     Dosage: 1 DOSAGE FORMS DAILY; 16|12.5 MG, 1?0?0?0
  5. VENLAFAXIN [Concomitant]
     Active Substance: VENLAFAXINE HYDROCHLORIDE
     Dosage: 150 MILLIGRAM DAILY;   1?0?0?0
  6. PREDNISOLON [Suspect]
     Active Substance: PREDNISOLONE
     Dosage: 20 MG, SCHEME
  7. TILIDINE/NALOXONE [Concomitant]
     Active Substance: NALOXONE HYDROCHLORIDE\TILIDINE HYDROCHLORIDE
     Dosage: 2 DOSAGE FORMS DAILY; 4|50 MG, 1?0?1?0
  8. PANTOPRAZOL [Concomitant]
     Active Substance: PANTOPRAZOLE SODIUM
     Dosage: 20 MILLIGRAM DAILY;   1?0?0?0
  9. ACETYLSALICYLSAURE [Concomitant]
     Active Substance: ASPIRIN
     Dosage: 100 MILLIGRAM DAILY;   0?1?0?0
  10. COLECALCIFEROL (VITAMIN D) [Concomitant]
     Active Substance: CHOLECALCIFEROL
     Dosage: 20000 IU, SCHEME

REACTIONS (4)
  - Anaemia [Recovering/Resolving]
  - Condition aggravated [Recovering/Resolving]
  - Hypotension [Recovering/Resolving]
  - Renal impairment [Recovering/Resolving]
